FAERS Safety Report 6501738-2 (Version None)
Quarter: 2009Q4

REPORT INFORMATION
  Report Type: 
  Country: None (occurrence: None)
  Receive Date: 20091207
  Receipt Date: 20091120
  Transmission Date: 20100525
  Serious: Yes (Hospitalization, Other)
  Sender: FDA-Public Use
  Company Number: WAES 0911USA04135

PATIENT
  Age: 63 Year
  Sex: Female

DRUGS (2)
  1. CAP VORINOSTAT [Suspect]
     Dosage: 400 MG DAILY PO
     Route: 048
     Dates: start: 20091030, end: 20091112
  2. VELCADE [Suspect]
     Dosage: 2.7 MG DAILY IV
     Route: 042
     Dates: start: 20091030, end: 20091109

REACTIONS (7)
  - DYSKINESIA [None]
  - FALL [None]
  - METASTASES TO MENINGES [None]
  - MUSCULAR WEAKNESS [None]
  - PAIN [None]
  - PERIPHERAL SENSORIMOTOR NEUROPATHY [None]
  - SIMPLE PARTIAL SEIZURES [None]
